FAERS Safety Report 12870998 (Version 23)
Quarter: 2020Q1

REPORT INFORMATION
  Report Type: Report from Study
  Country: CA (occurrence: CA)
  Receive Date: 20161021
  Receipt Date: 20200304
  Transmission Date: 20200409
  Serious: Yes (Death, Hospitalization, Other)
  Sender: FDA-Public Use
  Company Number: PHHY2014CA086496

PATIENT
  Age: 78 Year
  Sex: Female
  Weight: 47.17 kg

DRUGS (7)
  1. CLAVULIN [Concomitant]
     Active Substance: AMOXICILLIN\CLAVULANATE POTASSIUM
     Indication: PRODUCT USED FOR UNKNOWN INDICATION
     Dosage: UNK
     Route: 065
     Dates: start: 2018
  2. SANDOSTATIN [Suspect]
     Active Substance: OCTREOTIDE ACETATE
     Indication: DIARRHOEA
     Dosage: 50 UG, TID
     Route: 058
     Dates: start: 20140726
  3. TETRACYCLINE [Concomitant]
     Active Substance: TETRACYCLINE
     Indication: PRODUCT USED FOR UNKNOWN INDICATION
     Dosage: 250 MG, BID (FOR 21 DAYS)
     Route: 065
     Dates: start: 2018
  4. SANDOSTATIN [Suspect]
     Active Substance: OCTREOTIDE ACETATE
     Indication: GASTROINTESTINAL HYPOMOTILITY
     Dosage: 50 UG, TID
     Route: 058
     Dates: start: 20140626, end: 20140710
  5. SANDOSTATIN [Suspect]
     Active Substance: OCTREOTIDE ACETATE
     Dosage: UNK
     Route: 058
     Dates: start: 201804
  6. SANDOSTATIN LAR DEPOT [Suspect]
     Active Substance: OCTREOTIDE ACETATE
     Indication: GASTROINTESTINAL HYPOMOTILITY
     Dosage: 30 MG, Q3W
     Route: 030
     Dates: start: 20140711, end: 20200207
  7. SANDOSTATIN LAR DEPOT [Suspect]
     Active Substance: OCTREOTIDE ACETATE
     Indication: DIARRHOEA
     Dosage: 20 MG, QMO
     Route: 030
     Dates: start: 20140711

REACTIONS (33)
  - Death [Fatal]
  - Peripheral swelling [Not Recovered/Not Resolved]
  - Gastrointestinal disorder [Unknown]
  - Anxiety [Unknown]
  - Varicose vein [Unknown]
  - Abdominal pain upper [Unknown]
  - Neck mass [Unknown]
  - Injection site pain [Unknown]
  - Gastroenteritis [Unknown]
  - Erythema [Recovering/Resolving]
  - Inflammation [Recovering/Resolving]
  - Hyperthermia [Unknown]
  - Diarrhoea [Unknown]
  - Vomiting [Unknown]
  - Haematochezia [Unknown]
  - Blood iron decreased [Unknown]
  - Pain in extremity [Unknown]
  - Body temperature decreased [Unknown]
  - Nausea [Unknown]
  - Blood pressure increased [Unknown]
  - Blood pressure diastolic decreased [Unknown]
  - Blood pressure decreased [Unknown]
  - Inappropriate schedule of product administration [Unknown]
  - Dyspnoea [Not Recovered/Not Resolved]
  - Abdominal pain [Unknown]
  - Ulcer [Unknown]
  - Weight increased [Unknown]
  - Clostridium difficile infection [Unknown]
  - Acute pulmonary oedema [Unknown]
  - Swelling [Unknown]
  - Nausea [Recovered/Resolved]
  - Heart rate decreased [Unknown]
  - Product use in unapproved indication [Unknown]

NARRATIVE: CASE EVENT DATE: 20140711
